FAERS Safety Report 5520546-2 (Version None)
Quarter: 2007Q4

REPORT INFORMATION
  Report Type: 
  Country: None (occurrence: None)
  Receive Date: 20071115
  Receipt Date: 20071101
  Transmission Date: 20080405
  Serious: Yes (Death)
  Sender: FDA-Public Use
  Company Number: 2007S1000418

PATIENT
  Age: 48 Year
  Sex: Male
  Weight: 45.0422 kg

DRUGS (5)
  1. CUBICIN [Suspect]
     Indication: BACTERAEMIA
     Dosage: 6 MG/KG; Q48H; IV
     Route: 042
     Dates: start: 20070305, end: 20070311
  2. VANCOMYCIN [Concomitant]
  3. CEFEPIME [Concomitant]
  4. PHENYTOIN [Concomitant]
  5. COLISTIN SULFATE [Concomitant]

REACTIONS (5)
  - ACINETOBACTER INFECTION [None]
  - BACTERIAL INFECTION [None]
  - DRUG RESISTANCE [None]
  - KLEBSIELLA INFECTION [None]
  - PNEUMONIA ASPIRATION [None]
